FAERS Safety Report 9886399 (Version 1)
Quarter: 2014Q1

REPORT INFORMATION
  Report Type: Spontaneous
  Country: IT (occurrence: IT)
  Receive Date: 20140210
  Receipt Date: 20140210
  Transmission Date: 20141002
  Serious: Yes (Other)
  Sender: FDA-Public Use
  Company Number: IT-WATSON-2014-02183

PATIENT
  Age: 56 Year
  Sex: Female
  Weight: 48 kg

DRUGS (6)
  1. IRINOTECAN (UNKNOWN) [Suspect]
     Indication: ADENOCARCINOMA GASTRIC
     Dosage: 250 MG, CYCLICAL
     Route: 042
     Dates: start: 20130924, end: 20131213
  2. FLUOROURACIL (UNKNOWN) [Suspect]
     Indication: GASTRIC CANCER
     Dosage: 560 MG, CYCLICAL
     Route: 040
     Dates: start: 20130924, end: 20131213
  3. FLUOROURACIL (UNKNOWN) [Suspect]
     Dosage: 3360 MG, CYCLICAL
     Route: 041
     Dates: start: 20130924, end: 20131213
  4. COMBISARTAN [Concomitant]
     Indication: HYPERTENSION
     Dosage: 1 POSOLOGICAL UNIT, UNK
     Route: 065
  5. ANTRA                              /00661201/ [Concomitant]
     Indication: GASTROOESOPHAGEAL REFLUX DISEASE
     Dosage: 1 POSOLOGICAL UNIT, UNK
     Route: 065
  6. LEVOFOLINIC ACID [Concomitant]
     Indication: PRODUCT USED FOR UNKNOWN INDICATION
     Dosage: 280 MG, UNK
     Route: 065

REACTIONS (2)
  - Leukopenia [Unknown]
  - Neutropenia [Unknown]
